FAERS Safety Report 18686639 (Version 1)
Quarter: 2020Q4

REPORT INFORMATION
  Report Type: Report from Study
  Country: None (occurrence: US)
  Receive Date: 20201230
  Receipt Date: 20201230
  Transmission Date: 20210114
  Serious: Yes (Other)
  Sender: FDA-Public Use
  Company Number: US-ABBVIE-20K-163-3664386-00

PATIENT
  Age: 63 Year
  Sex: Female

DRUGS (2)
  1. CRESTOR [Concomitant]
     Active Substance: ROSUVASTATIN CALCIUM
     Indication: BLOOD CHOLESTEROL DECREASED
  2. HUMIRA [Suspect]
     Active Substance: ADALIMUMAB
     Indication: HIDRADENITIS
     Dosage: CITRATE FREE
     Route: 058

REACTIONS (10)
  - Hidradenitis [Recovered/Resolved]
  - Therapeutic response unexpected [Unknown]
  - Endoscopy [Recovered/Resolved]
  - Osteoarthritis [Unknown]
  - Blood cholesterol increased [Unknown]
  - Injection site pain [Recovered/Resolved]
  - Barrett^s oesophagus [Unknown]
  - Haematemesis [Unknown]
  - Infection [Recovered/Resolved]
  - Fall [Recovered/Resolved]

NARRATIVE: CASE EVENT DATE: 202002
